FAERS Safety Report 25792744 (Version 1)
Quarter: 2025Q3

REPORT INFORMATION
  Report Type: Spontaneous
  Country: IL (occurrence: IL)
  Receive Date: 20250911
  Receipt Date: 20250911
  Transmission Date: 20251020
  Serious: Yes (Other)
  Sender: BIOMARIN
  Company Number: IL-Medison-001049

PATIENT
  Sex: Female
  Weight: 16 kg

DRUGS (1)
  1. VIMIZIM [Suspect]
     Active Substance: ELOSULFASE ALFA
     Indication: Mucopolysaccharidosis IV
     Dosage: UNK, QW
     Dates: start: 20160803

REACTIONS (2)
  - Disease progression [Not Recovered/Not Resolved]
  - Spinal decompression [Unknown]

NARRATIVE: CASE EVENT DATE: 20250902
